FAERS Safety Report 6654983-X (Version None)
Quarter: 2010Q1

REPORT INFORMATION
  Report Type: 
  Country: None (occurrence: None)
  Receive Date: 20100329
  Receipt Date: 20100319
  Transmission Date: 20100710
  Serious: Yes (Other)
  Sender: FDA-Public Use
  Company Number: GB-TEVA-131814USA

PATIENT
  Age: 56 Year
  Sex: Female

DRUGS (16)
  1. PIMOZIDE TABLETS [Suspect]
     Indication: BLADDER DISORDER
     Route: 048
  2. PIMOZIDE TABLETS [Interacting]
     Indication: ABDOMINAL PAIN UPPER
  3. PIZOTIFEN [Interacting]
     Indication: DRUG USE FOR UNKNOWN INDICATION
     Route: 065
  4. TOLTERODINE TARTRATE [Interacting]
     Indication: DRUG USE FOR UNKNOWN INDICATION
     Route: 065
  5. CYCLOPENTHIAZIDE [Interacting]
     Indication: DRUG USE FOR UNKNOWN INDICATION
     Route: 065
  6. ARTHROTEC [Interacting]
     Indication: DRUG USE FOR UNKNOWN INDICATION
     Route: 065
  7. CISAPRIDE [Interacting]
     Indication: DRUG USE FOR UNKNOWN INDICATION
     Route: 065
  8. METOCLOPRAMIDE [Concomitant]
     Route: 065
  9. OMEPRAZOLE [Concomitant]
     Route: 065
  10. LISINOPRIL [Concomitant]
     Route: 065
  11. AMLODIPINE [Concomitant]
     Route: 065
  12. FUROSEMIDE [Concomitant]
     Route: 065
  13. LEVOTHYROXINE SODIUM [Concomitant]
     Route: 065
  14. QUININE [Concomitant]
     Route: 065
  15. ERYTHROMYCIN [Concomitant]
     Route: 065
  16. PHENOXYMETHYLPENICILLIN [Concomitant]
     Route: 065

REACTIONS (17)
  - BLOOD PRESSURE INCREASED [None]
  - BREAST CANCER [None]
  - CONSTIPATION [None]
  - DRUG INTERACTION [None]
  - FALL [None]
  - FATIGUE [None]
  - HIATUS HERNIA [None]
  - HYPOTHYROIDISM [None]
  - INCONTINENCE [None]
  - LOWER RESPIRATORY TRACT INFECTION [None]
  - MEDICATION ERROR [None]
  - MIGRAINE [None]
  - NOSOCOMIAL INFECTION [None]
  - OFF LABEL USE [None]
  - RENAL DISORDER [None]
  - SURGERY [None]
  - WEIGHT INCREASED [None]
